FAERS Safety Report 15462887 (Version 1)
Quarter: 2018Q4

REPORT INFORMATION
  Report Type: Spontaneous
  Country: US (occurrence: US)
  Receive Date: 20181004
  Receipt Date: 20181004
  Transmission Date: 20190204
  Serious: No
  Sender: FDA-Public Use
  Company Number: US-009507513-1809USA011033

PATIENT
  Sex: Male

DRUGS (1)
  1. ISENTRESS [Suspect]
     Active Substance: RALTEGRAVIR POTASSIUM
     Indication: HIV INFECTION
     Dosage: 600 MG / ONCE DAILY
     Route: 048

REACTIONS (6)
  - Rash vesicular [Unknown]
  - Abdominal distension [Unknown]
  - Headache [Unknown]
  - Blood glucose increased [Unknown]
  - Dyspnoea [Unknown]
  - Incorrect dose administered [Unknown]
